FAERS Safety Report 9310144 (Version 1)
Quarter: 2013Q2

REPORT INFORMATION
  Report Type: Spontaneous
  Country: US (occurrence: US)
  Receive Date: 20130527
  Receipt Date: 20130527
  Transmission Date: 20140414
  Serious: No
  Sender: FDA-Public Use
  Company Number: US-B.I. PHARMACEUTICALS,INC./RIDGEFIELD-2013-BI-14604BP

PATIENT
  Age: 79 Year
  Sex: Male
  Weight: 79 kg

DRUGS (10)
  1. JENTADUETO [Suspect]
     Indication: DIABETES MELLITUS
     Dosage: STRENGTH: 2.5 MG / 1000 MG; DAILY DOSE: 5.0 MG / 2000 MG
     Route: 048
     Dates: start: 20130301, end: 20130517
  2. HYDROCODONE [Concomitant]
     Indication: BACK PAIN
     Dosage: STRENGTH: 5-500 MG
     Route: 048
  3. CRESTOR [Concomitant]
     Indication: CARDIOVASCULAR DISORDER
     Dosage: 40 MG
     Route: 048
  4. TAMSULOSIN [Concomitant]
     Indication: PROSTATOMEGALY
     Dosage: 0.8 MG
  5. TOPROL [Concomitant]
     Indication: CARDIOVASCULAR DISORDER
     Dosage: 50 MG
     Route: 048
  6. AMLODIPINE [Concomitant]
     Indication: CARDIOVASCULAR DISORDER
     Dosage: 5 MG
     Route: 048
  7. PRANDIN [Concomitant]
     Indication: DIABETES MELLITUS
     Dosage: 6 MG
     Route: 048
     Dates: start: 20130518
  8. FINASTERIDE [Concomitant]
     Indication: PROSTATOMEGALY
     Dosage: 10 MG
     Route: 048
  9. ONGLYZA [Concomitant]
     Indication: DIABETES MELLITUS
     Dosage: 5 MG
     Route: 048
     Dates: start: 20130518
  10. PLAVIX [Concomitant]
     Indication: CARDIOVASCULAR DISORDER
     Dosage: 75 MG
     Route: 048

REACTIONS (1)
  - Blood glucose increased [Not Recovered/Not Resolved]
